FAERS Safety Report 4503739-2 (Version None)
Quarter: 2004Q4

REPORT INFORMATION
  Report Type: 
  Country: None (occurrence: None)
  Receive Date: 20041115
  Receipt Date: 20041104
  Transmission Date: 20050328
  Serious: Yes (Disabling)
  Sender: FDA-Public Use
  Company Number: 2004-11-0262

PATIENT
  Age: 54 Year
  Sex: Male

DRUGS (1)
  1. INTRON A [Suspect]
     Indication: MALIGNANT MELANOMA
     Dosage: SUBCUTANEOUS
     Route: 058
     Dates: end: 20030610

REACTIONS (3)
  - ADVERSE EVENT [None]
  - COGNITIVE DISORDER [None]
  - DIZZINESS [None]
